FAERS Safety Report 7356974-2 (Version None)
Quarter: 2011Q1

REPORT INFORMATION
  Report Type: 
  Country: None (occurrence: None)
  Receive Date: 20110317
  Receipt Date: 20091208
  Transmission Date: 20110831
  Serious: No
  Sender: FDA-Public Use
  Company Number: 2009BI040423

PATIENT
  Sex: Male

DRUGS (3)
  1. AMPYRA [Concomitant]
     Dates: start: 20100816
  2. TYSABRI [Suspect]
     Indication: MULTIPLE SCLEROSIS
     Route: 042
     Dates: start: 20091008
  3. AMPYRA [Concomitant]
     Dates: start: 20110101

REACTIONS (7)
  - SKIN EXFOLIATION [None]
  - DRUG INEFFECTIVE [None]
  - DEPRESSION [None]
  - MUSCULAR WEAKNESS [None]
  - MEMORY IMPAIRMENT [None]
  - BLADDER DYSFUNCTION [None]
  - OEDEMA PERIPHERAL [None]
